FAERS Safety Report 21801586 (Version 1)
Quarter: 2022Q4

REPORT INFORMATION
  Report Type: Report from Study
  Country: US (occurrence: US)
  Receive Date: 20221230
  Receipt Date: 20221230
  Transmission Date: 20230113
  Serious: Yes (Other)
  Sender: FDA-Public Use
  Company Number: US-GILEAD-2022-0611236

PATIENT
  Sex: Female

DRUGS (33)
  1. AMBRISENTAN [Suspect]
     Active Substance: AMBRISENTAN
     Indication: Pulmonary arterial hypertension
     Dosage: 10 MG, UNK
     Route: 065
  2. ABILIFY [Concomitant]
     Active Substance: ARIPIPRAZOLE
  3. ALBUTEROL [Concomitant]
     Active Substance: ALBUTEROL
  4. VENLAFAXINE [Concomitant]
     Active Substance: VENLAFAXINE HYDROCHLORIDE
  5. ESCITALOPRAM [Concomitant]
     Active Substance: ESCITALOPRAM OXALATE
  6. PREDNISONE [Concomitant]
     Active Substance: PREDNISONE
  7. REXULTI [Concomitant]
     Active Substance: BREXPIPRAZOLE
  8. ACETAMINOPHEN [Concomitant]
     Active Substance: ACETAMINOPHEN
  9. LOSARTAN [Concomitant]
     Active Substance: LOSARTAN
  10. FLUTICASONE [Concomitant]
     Active Substance: FLUTICASONE
  11. METFORMIN [Concomitant]
     Active Substance: METFORMIN HYDROCHLORIDE
  12. BIOTIN [Concomitant]
     Active Substance: BIOTIN
  13. BENZTROPINE [Concomitant]
     Active Substance: BENZTROPINE
  14. FUROSEMIDE [Concomitant]
     Active Substance: FUROSEMIDE
  15. AZELASTINE [Concomitant]
     Active Substance: AZELASTINE
  16. MELATONIN [Concomitant]
     Active Substance: MELATONIN
  17. ADVAIR HFA [Concomitant]
     Active Substance: FLUTICASONE PROPIONATE\SALMETEROL XINAFOATE
  18. DULOXETINE [Concomitant]
     Active Substance: DULOXETINE
  19. ADEMPAS [Concomitant]
     Active Substance: RIOCIGUAT
  20. ATORVASTATIN [Concomitant]
     Active Substance: ATORVASTATIN
  21. MONTELUKAST [Concomitant]
     Active Substance: MONTELUKAST SODIUM
  22. LEVOTHYROXINE [Concomitant]
     Active Substance: LEVOTHYROXINE
  23. SIMVASTATIN [Concomitant]
     Active Substance: SIMVASTATIN
  24. CLARITIN-D NOS [Concomitant]
     Active Substance: LORATADINE\PSEUDOEPHEDRINE SULFATE
  25. ADCIRCA [Concomitant]
     Active Substance: TADALAFIL
  26. GABAPENTIN [Concomitant]
     Active Substance: GABAPENTIN
  27. SPIRONOLACTONE [Concomitant]
     Active Substance: SPIRONOLACTONE
  28. METOPROLOL [Concomitant]
     Active Substance: METOPROLOL
  29. CALCIUM [Concomitant]
     Active Substance: CALCIUM
  30. VITAMIN D3 [Concomitant]
     Active Substance: CHOLECALCIFEROL
  31. OLANZAPINE [Concomitant]
     Active Substance: OLANZAPINE
  32. ALENDRONATE [Concomitant]
     Active Substance: ALENDRONATE SODIUM
  33. LAMOTRIGINE [Concomitant]
     Active Substance: LAMOTRIGINE

REACTIONS (1)
  - Atrial fibrillation [Unknown]
